FAERS Safety Report 9440489 (Version 4)
Quarter: 2013Q3

REPORT INFORMATION
  Report Type: Spontaneous
  Country: DK (occurrence: PT)
  Receive Date: 20130805
  Receipt Date: 20130830
  Transmission Date: 20140515
  Serious: Yes (Life-Threatening, Hospitalization, Other)
  Sender: FDA-Public Use
  Company Number: PT-FRI-1000047440

PATIENT
  Age: 70 Year
  Sex: Male
  Weight: 65 kg

DRUGS (8)
  1. ESCITALOPRAM [Suspect]
     Indication: ALCOHOLISM
     Dosage: 10 MG
     Route: 048
     Dates: start: 20130128
  2. SELINCRO [Suspect]
     Indication: ALCOHOLISM
     Dosage: 18 MG
     Route: 048
     Dates: start: 20130620, end: 20130703
  3. TOPIRAMATE [Suspect]
     Indication: ALCOHOLISM
     Dosage: 100 MG
     Route: 048
     Dates: start: 20130515
  4. CAMPRAL [Concomitant]
     Indication: ALCOHOLISM
     Dosage: 1998 MG
     Route: 048
     Dates: start: 20130222
  5. LYRICA [Concomitant]
     Indication: ALCOHOLISM
     Dosage: 100 MG
     Route: 048
     Dates: start: 201302
  6. SIMVASTATIN [Concomitant]
     Indication: DYSLIPIDAEMIA
     Dosage: 20 MG
     Route: 048
  7. NALTREXONE [Concomitant]
     Indication: ALCOHOLISM
     Dosage: 50 MG
     Route: 048
     Dates: start: 20130222, end: 20130619
  8. NALTREXONE [Concomitant]
     Dosage: 50 MG
     Dates: start: 20130704

REACTIONS (6)
  - Melaena [Recovering/Resolving]
  - Haematuria [Recovering/Resolving]
  - Gingival bleeding [Recovering/Resolving]
  - Ecchymosis [Recovering/Resolving]
  - Platelet count decreased [Recovering/Resolving]
  - Thrombocytopenia [Recovering/Resolving]
